FAERS Safety Report 4847799-8 (Version None)
Quarter: 2005Q4

REPORT INFORMATION
  Report Type: 
  Country: None (occurrence: None)
  Receive Date: 20051205
  Receipt Date: 20051118
  Transmission Date: 20060501
  Serious: Yes (Death)
  Sender: FDA-Public Use
  Company Number: 0512-670

PATIENT
  Age: 1 Day
  Sex: Male
  Weight: 3200 kg

DRUGS (1)
  1. CUROSURF [Suspect]
     Indication: ACUTE RESPIRATORY DISTRESS SYNDROME
     Dosage: INTRATRACHEAL
     Route: 039

REACTIONS (3)
  - C-REACTIVE PROTEIN INCREASED [None]
  - CONDITION AGGRAVATED [None]
  - PNEUMOCOCCAL INFECTION [None]
